FAERS Safety Report 24829959 (Version 2)
Quarter: 2025Q1

REPORT INFORMATION
  Report Type: Spontaneous
  Country: US (occurrence: US)
  Receive Date: 20250110
  Receipt Date: 20250308
  Transmission Date: 20250409
  Serious: No
  Sender: ALEXION PHARMACEUTICALS
  Company Number: US-AstraZeneca-CH-00780050AP

PATIENT
  Age: 53 Year

DRUGS (1)
  1. BYDUREON BCISE [Suspect]
     Active Substance: EXENATIDE
     Route: 065

REACTIONS (7)
  - Device leakage [Unknown]
  - Puncture site oedema [Unknown]
  - Urticaria [Unknown]
  - Complication associated with device [Unknown]
  - Injection site urticaria [Unknown]
  - Device use error [Unknown]
  - Device issue [Unknown]
